FAERS Safety Report 8985212 (Version 2)
Quarter: 2013Q1

REPORT INFORMATION
  Report Type: Spontaneous
  Country: CN (occurrence: CN)
  Receive Date: 20121226
  Receipt Date: 20130102
  Transmission Date: 20140127
  Serious: Yes (Death, Hospitalization, Other)
  Sender: FDA-Public Use
  Company Number: CN-JNJFOC-20121209730

PATIENT
  Age: 69 Year
  Sex: Female

DRUGS (2)
  1. SPORANOX [Suspect]
     Indication: PERITONITIS
     Route: 033
     Dates: start: 20121125, end: 20121127
  2. SPORANOX [Suspect]
     Indication: FUNGAL INFECTION
     Route: 033
     Dates: start: 20121125, end: 20121127

REACTIONS (5)
  - Gastric haemorrhage [Fatal]
  - Fungal peritonitis [Fatal]
  - Confusional state [Unknown]
  - Feeling cold [Unknown]
  - Incorrect route of drug administration [Unknown]
